FAERS Safety Report 11582312 (Version 1)
Quarter: 2015Q3

REPORT INFORMATION
  Report Type: Spontaneous
  Country: US (occurrence: None)
  Receive Date: 20150930
  Receipt Date: 20150930
  Transmission Date: 20151125
  Serious: Yes (Life-Threatening, Hospitalization)
  Sender: FDA-Public Use
  Company Number: None

PATIENT
  Age: 35 Year
  Sex: Female
  Weight: 56.7 kg

DRUGS (4)
  1. SYMBACORT [Concomitant]
  2. ALBUTEROL. [Concomitant]
     Active Substance: ALBUTEROL
  3. LOSETRIN BIRTH CONTROL PILLS [Concomitant]
  4. LEVAQUIN [Suspect]
     Active Substance: LEVOFLOXACIN
     Indication: PNEUMONIA BACTERIAL
     Dosage: 1 PILL
     Route: 048
     Dates: start: 20150713, end: 20150722

REACTIONS (3)
  - Pulmonary embolism [None]
  - Tachycardia [None]
  - Haemoptysis [None]

NARRATIVE: CASE EVENT DATE: 20150720
